FAERS Safety Report 8101549-0 (Version None)
Quarter: 2012Q1

REPORT INFORMATION
  Report Type: 
  Country: None (occurrence: None)
  Receive Date: 20120129
  Receipt Date: 20110918
  Transmission Date: 20120608
  Serious: No
  Sender: FDA-Public Use
  Company Number: US-ABBOTT-11P-163-0855743-00

PATIENT
  Age: 31 Year
  Sex: Female

DRUGS (5)
  1. MULTI-VITAMIN [Concomitant]
     Indication: VITAMIN SUPPLEMENTATION
  2. ZYRTEC [Concomitant]
     Indication: SEASONAL ALLERGY
  3. LIALDA [Concomitant]
     Indication: COLITIS
     Dosage: 2 PILLS, DAILY
  4. HUMIRA [Suspect]
     Indication: COLITIS ULCERATIVE
     Dates: start: 20110501
  5. LOESTRIN 24 FE [Concomitant]
     Indication: CONTRACEPTION

REACTIONS (1)
  - INJECTION SITE URTICARIA [None]
